FAERS Safety Report 7608801-3 (Version None)
Quarter: 2011Q3

REPORT INFORMATION
  Report Type: 
  Country: None (occurrence: None)
  Receive Date: 20110714
  Receipt Date: 20110708
  Transmission Date: 20111222
  Serious: Yes (Hospitalization, Disabling, Other)
  Sender: FDA-Public Use
  Company Number: US-PFIZER INC-2011154649

PATIENT
  Sex: Female
  Weight: 81.63 kg

DRUGS (10)
  1. NEURONTIN [Suspect]
     Dosage: 600 MG, 3X/DAY
     Route: 048
  2. GLUCOPHAGE [Concomitant]
     Indication: DIABETES MELLITUS
     Dosage: UNK
     Route: 048
  3. PERCOCET [Concomitant]
     Indication: PAIN
     Dosage: UNK
     Route: 048
  4. GLIPIZIDE [Concomitant]
     Indication: DIABETES MELLITUS
     Dosage: UNK
     Route: 048
  5. LYRICA [Suspect]
     Indication: NERVE INJURY
     Dosage: 100 MG
     Route: 048
  6. NEURONTIN [Suspect]
     Indication: NERVE INJURY
     Dosage: 300 MG, 4X/DAY
     Route: 048
  7. LASIX [Suspect]
     Indication: OEDEMA PERIPHERAL
     Dosage: UNK
     Route: 048
  8. HYDROCHLOROTHIAZIDE [Concomitant]
     Indication: BLOOD PRESSURE ABNORMAL
     Dosage: DAILY
     Route: 048
  9. MORPHINE SULFATE [Suspect]
     Indication: NERVE INJURY
     Dosage: 60 MG, 2X/DAY
     Route: 048
  10. LANTUS [Concomitant]
     Indication: DIABETES MELLITUS
     Dosage: 30 IU, DAILY

REACTIONS (3)
  - OEDEMA PERIPHERAL [None]
  - MUSCLE SPASMS [None]
  - ACTIVITIES OF DAILY LIVING IMPAIRED [None]
